FAERS Safety Report 13781764 (Version 1)
Quarter: 2017Q3

REPORT INFORMATION
  Report Type: Spontaneous
  Country: GB (occurrence: GB)
  Receive Date: 20170724
  Receipt Date: 20170724
  Transmission Date: 20171127
  Serious: Yes (Other)
  Sender: FDA-Public Use
  Company Number: GB-ELI_LILLY_AND_COMPANY-GB201707008441

PATIENT
  Age: 74 Year
  Sex: Male
  Weight: 96 kg

DRUGS (9)
  1. DOXAZOSIN [Concomitant]
     Active Substance: DOXAZOSIN\DOXAZOSIN MESYLATE
     Dosage: 1 DF, DAILY
     Dates: start: 20161006
  2. GLUCOPHAGE [Concomitant]
     Active Substance: METFORMIN HYDROCHLORIDE
     Indication: DIABETES MELLITUS
     Dosage: 2 DF, DAILY
     Dates: start: 20161006
  3. CLOTRIMAZOLE. [Concomitant]
     Active Substance: CLOTRIMAZOLE
     Dosage: APPLY 2-3 TIMES A DAY
     Dates: start: 20170509, end: 20170606
  4. DIPROBASE                          /01210201/ [Concomitant]
     Indication: DRY SKIN
     Dosage: UNK UNK, PRN
     Dates: start: 20161006
  5. HUMULIN M3 (MIXTURE 30/70) [Suspect]
     Active Substance: INSULIN HUMAN
     Indication: PRODUCT USED FOR UNKNOWN INDICATION
     Dosage: UNK UNK, UNKNOWN
     Route: 065
     Dates: start: 20161006
  6. CANDESARTAN. [Concomitant]
     Active Substance: CANDESARTAN
     Dosage: 1 DF, OTHER
     Dates: start: 20170504
  7. VISCOTEARS [Concomitant]
     Active Substance: CARBOMER
     Dosage: 1 GTT, PRN
     Dates: start: 20161006
  8. FINASTERIDE. [Concomitant]
     Active Substance: FINASTERIDE
     Indication: PROSTATIC DISORDER
     Dosage: 1 DF, DAILY
     Dates: start: 20161006
  9. SIMVASTATIN. [Concomitant]
     Active Substance: SIMVASTATIN
     Indication: BLOOD CHOLESTEROL INCREASED
     Dosage: 1 DF, DAILY
     Dates: start: 20161006

REACTIONS (1)
  - Injection site urticaria [Recovered/Resolved]

NARRATIVE: CASE EVENT DATE: 20170711
